FAERS Safety Report 8507859-7 (Version None)
Quarter: 2012Q3

REPORT INFORMATION
  Report Type: 
  Country: None (occurrence: None)
  Receive Date: 20120713
  Receipt Date: 20120702
  Transmission Date: 20120928
  Serious: Yes (Other)
  Sender: FDA-Public Use
  Company Number: AU-JNJFOC-20120613173

PATIENT
  Age: 94 Year
  Sex: Female

DRUGS (1)
  1. TRAMADOL HCL [Suspect]
     Indication: ANALGESIC THERAPY
     Route: 065
     Dates: start: 20120604, end: 20120615

REACTIONS (3)
  - MUSCLE TWITCHING [None]
  - CONFUSIONAL STATE [None]
  - VISION BLURRED [None]
